FAERS Safety Report 25704170 (Version 3)
Quarter: 2025Q3

REPORT INFORMATION
  Report Type: Report from Study
  Country: US (occurrence: US)
  Receive Date: 20250820
  Receipt Date: 20250919
  Transmission Date: 20251020
  Serious: No
  Sender: SUNOVION
  Company Number: US-SMPA-2025SPA010387

PATIENT
  Age: 75 Year
  Sex: Male

DRUGS (2)
  1. ORGOVYX [Suspect]
     Active Substance: RELUGOLIX
     Indication: Prostate cancer
     Route: 048
  2. NUBEQA [Concomitant]
     Active Substance: DAROLUTAMIDE

REACTIONS (8)
  - Sluggishness [Unknown]
  - Mobility decreased [Unknown]
  - Bradyphrenia [Unknown]
  - Asthenia [Unknown]
  - Feeling hot [Unknown]
  - Fatigue [Unknown]
  - Hot flush [Unknown]
  - Incorrect dose administered [Recovered/Resolved]
